FAERS Safety Report 10677206 (Version 2)
Quarter: 2015Q1

REPORT INFORMATION
  Report Type: Report from Study
  Country: FR (occurrence: FR)
  Receive Date: 20141226
  Receipt Date: 20150127
  Transmission Date: 20150720
  Serious: Yes (Life-Threatening, Hospitalization, Disabling)
  Sender: FDA-Public Use
  Company Number: PHHY2014FR167796

PATIENT
  Age: 66 Year
  Sex: Female

DRUGS (3)
  1. CERTICAN [Suspect]
     Active Substance: EVEROLIMUS
     Indication: RENAL TRANSPLANT
     Route: 065
  2. NEORAL [Suspect]
     Active Substance: CYCLOSPORINE
     Indication: RENAL TRANSPLANT
     Dosage: 1 G, BID
     Route: 048
  3. CELLCEPT [Suspect]
     Active Substance: MYCOPHENOLATE MOFETIL\MYCOPHENOLATE MOFETIL HYDROCHLORIDE
     Indication: RENAL TRANSPLANT
     Dosage: 50 MG, BID
     Route: 048

REACTIONS (2)
  - Peritonitis [Recovering/Resolving]
  - Diverticular perforation [Recovering/Resolving]

NARRATIVE: CASE EVENT DATE: 20141011
